FAERS Safety Report 10925389 (Version 1)
Quarter: 2015Q1

REPORT INFORMATION
  Report Type: Spontaneous
  Country: US (occurrence: None)
  Receive Date: 20150316
  Receipt Date: 20150316
  Transmission Date: 20150721
  Serious: No
  Sender: FDA-Public Use
  Company Number: None

PATIENT
  Age: 68 Year
  Sex: Male

DRUGS (11)
  1. ILEVRO [Concomitant]
     Active Substance: NEPAFENAC
  2. TESTOSTERONE. [Concomitant]
     Active Substance: TESTOSTERONE
  3. SUTENT [Suspect]
     Active Substance: SUNITINIB MALATE
     Indication: RENAL CANCER
     Dosage: 1 CAPSUE  QD PO
     Route: 048
     Dates: start: 20150219, end: 20150313
  4. CEPHAKEXIN [Concomitant]
  5. CLOBETASOL [Concomitant]
     Active Substance: CLOBETASOL
  6. DESMORPRESSIN [Concomitant]
  7. PREDNISONE. [Concomitant]
     Active Substance: PREDNISONE
  8. AZELASTINE [Concomitant]
     Active Substance: AZELASTINE
  9. LEVOTHYROXINE [Concomitant]
     Active Substance: LEVOTHYROXINE
  10. ACETAZOLAMIIDE [Concomitant]
  11. MUPIROCIN. [Concomitant]
     Active Substance: MUPIROCIN

REACTIONS (5)
  - Decreased appetite [None]
  - Constipation [None]
  - Blood testosterone decreased [None]
  - Blood pressure increased [None]
  - Asthenia [None]

NARRATIVE: CASE EVENT DATE: 20150219
